FAERS Safety Report 4365073-3 (Version None)
Quarter: 2004Q2

REPORT INFORMATION
  Report Type: 
  Country: None (occurrence: None)
  Receive Date: 20040521
  Receipt Date: 20040510
  Transmission Date: 20050107
  Serious: Yes (Other)
  Sender: FDA-Public Use
  Company Number: SE-JNJFOC-20040501847

PATIENT
  Age: 70 Year
  Sex: Female

DRUGS (6)
  1. REMICADE [Suspect]
     Indication: RHEUMATOID ARTHRITIS
     Dosage: 300 MG, 1 IN 8 WEEK, INTRAVENOUS
     Route: 042
     Dates: start: 20000101, end: 20031007
  2. METHOTREXATE [Concomitant]
  3. FOLACIN (FOLACIN) [Concomitant]
  4. CALCICHEW (CALCIUM CARBONATE) [Concomitant]
  5. LANZO (LANSOPRAZOLE0 [Concomitant]
  6. FOSAMAX [Concomitant]

REACTIONS (3)
  - CONJUNCTIVITIS BACTERIAL [None]
  - POSTOPERATIVE INFECTION [None]
  - RETINAL DETACHMENT [None]
